FAERS Safety Report 5493956-X (Version None)
Quarter: 2007Q4

REPORT INFORMATION
  Report Type: 
  Country: None (occurrence: None)
  Receive Date: 20071023
  Receipt Date: 20071012
  Transmission Date: 20080405
  Serious: Yes (Other)
  Sender: FDA-Public Use
  Company Number: US-PFIZER INC-2007087004

PATIENT
  Sex: Male
  Weight: 90.7 kg

DRUGS (4)
  1. LIPITOR [Suspect]
     Indication: BLOOD CHOLESTEROL INCREASED
     Route: 048
  2. LYRICA [Suspect]
     Indication: MYALGIA
     Route: 048
  3. MONOPRIL-HCT [Concomitant]
  4. ACETYLSALICYLIC ACID SRT [Concomitant]

REACTIONS (3)
  - CARDIAC ARREST [None]
  - DRUG INEFFECTIVE [None]
  - MYALGIA [None]
